FAERS Safety Report 5163710-7 (Version None)
Quarter: 2006Q4

REPORT INFORMATION
  Report Type: 
  Country: None (occurrence: None)
  Receive Date: 20061204
  Receipt Date: 20030206
  Transmission Date: 20070319
  Serious: Yes (Hospitalization)
  Sender: FDA-Public Use
  Company Number: FR-GLAXOSMITHKLINE-B0292079A

PATIENT
  Age: 1 Month
  Sex: Female
  Weight: 3.2 kg

DRUGS (6)
  1. EPIVIR [Suspect]
     Indication: HIV INFECTION
  2. VIRAMUNE [Suspect]
     Indication: ANTIVIRAL PROPHYLAXIS
     Route: 065
     Dates: start: 20020829, end: 20020829
  3. KALETRA [Suspect]
     Indication: ANTIVIRAL PROPHYLAXIS
     Route: 065
     Dates: start: 20020829, end: 20020829
  4. VIDEX [Suspect]
     Indication: HIV INFECTION
  5. KALETRA [Suspect]
     Indication: HIV INFECTION
  6. VIRAMUNE [Suspect]
     Indication: HIV INFECTION

REACTIONS (3)
  - DRUG EXPOSURE DURING PREGNANCY [None]
  - ECHOGRAPHY ABNORMAL [None]
  - MALAISE [None]
